FAERS Safety Report 20961553 (Version 1)
Quarter: 2022Q2

REPORT INFORMATION
  Report Type: Report from Study
  Country: US (occurrence: None)
  Receive Date: 20220615
  Receipt Date: 20220615
  Transmission Date: 20220721
  Serious: Yes (Other)
  Sender: FDA-Public Use
  Company Number: US-Merck Healthcare KGaA-9329247

PATIENT
  Sex: Female

DRUGS (3)
  1. REBIF [Suspect]
     Active Substance: INTERFERON BETA-1A
     Indication: Multiple sclerosis
     Dates: start: 20090609, end: 20150925
  2. REBIF [Suspect]
     Active Substance: INTERFERON BETA-1A
     Dates: start: 20190206, end: 20200320
  3. REBIF [Suspect]
     Active Substance: INTERFERON BETA-1A
     Dosage: REBIF: REBIF PREFILLED SYRINGE
     Route: 058
     Dates: start: 20211013

REACTIONS (1)
  - Nephrolithiasis [Unknown]
